FAERS Safety Report 9198562 (Version 1)
Quarter: 2013Q1

REPORT INFORMATION
  Report Type: Spontaneous
  Country: US (occurrence: US)
  Receive Date: 20130329
  Receipt Date: 20130329
  Transmission Date: 20140127
  Serious: Yes (Hospitalization, Other)
  Sender: FDA-Public Use
  Company Number: US-ELI_LILLY_AND_COMPANY-US201106004633

PATIENT
  Sex: Female

DRUGS (5)
  1. FORTEO [Suspect]
     Indication: OSTEOPOROSIS
     Dosage: 20 UG, QD
     Dates: start: 20110511
  2. ARICEPT [Concomitant]
     Indication: DEMENTIA
     Dosage: 10 MG, QD
  3. NORVASC [Concomitant]
     Dosage: 10 MG, QD
  4. MEVACOR [Concomitant]
     Dosage: 40 MG, QD
  5. MULTIVITAMIN [Concomitant]
     Dosage: UNK

REACTIONS (5)
  - Pelvic fracture [Unknown]
  - Upper limb fracture [Unknown]
  - Fall [Unknown]
  - Cataract [Unknown]
  - Vision blurred [Unknown]
